FAERS Safety Report 4391698-5 (Version None)
Quarter: 2004Q3

REPORT INFORMATION
  Report Type: 
  Country: None (occurrence: None)
  Receive Date: 20040702
  Receipt Date: 20040401
  Transmission Date: 20050211
  Serious: Yes (Other)
  Sender: FDA-Public Use
  Company Number: 2004UW06493

PATIENT
  Age: 52 Year
  Sex: Female
  Weight: 68.4932 kg

DRUGS (6)
  1. CRESTOR [Suspect]
     Indication: BLOOD CHOLESTEROL INCREASED
     Dosage: 5 MG QD PO
     Route: 048
     Dates: start: 20040330
  2. SOMA [Concomitant]
  3. PREMARIN [Concomitant]
  4. VERAPAMIL [Concomitant]
  5. PLAQUENIL [Concomitant]
  6. ASPIRIN [Concomitant]

REACTIONS (2)
  - MUSCLE SPASMS [None]
  - MYALGIA [None]
